FAERS Safety Report 9468451 (Version 1)
Quarter: 2013Q3

REPORT INFORMATION
  Report Type: Spontaneous
  Country: US (occurrence: US)
  Receive Date: 20130821
  Receipt Date: 20130821
  Transmission Date: 20140515
  Serious: Yes (Other)
  Sender: FDA-Public Use
  Company Number: US-PFIZER INC-2013237859

PATIENT
  Age: 59 Year
  Sex: Female
  Weight: 86.17 kg

DRUGS (8)
  1. LIPITOR [Suspect]
     Indication: BLOOD CHOLESTEROL INCREASED
     Dosage: 40 MG, DAILY
  2. DEPAKOTE ER [Suspect]
     Dosage: ONE 500 MG IN MORNING AND TWO 500 MG IN EVENING
     Route: 048
  3. XANAX [Concomitant]
     Dosage: 0.5 MG, DAILY
  4. CYMBALTA [Concomitant]
     Dosage: 60 MG, DAILY
  5. ASPIRIN [Concomitant]
     Dosage: 81 MG, DAILY
  6. CETIRIZINE HYDROCHLORIDE [Concomitant]
     Indication: HYPERSENSITIVITY
     Dosage: 10 MG, DAILY
     Route: 048
  7. RANITIDINE [Concomitant]
     Indication: GASTRIC DISORDER
     Dosage: 300 MG, DAILY
  8. OMEPRAZOLE [Concomitant]
     Indication: ABDOMINAL DISCOMFORT
     Dosage: 40 MG, 1X/DAY
     Route: 048

REACTIONS (5)
  - Hearing aid user [Unknown]
  - Blood cholesterol increased [Unknown]
  - Malaise [Unknown]
  - Fatigue [Unknown]
  - Asthenia [Unknown]
